FAERS Safety Report 5578865-X (Version None)
Quarter: 2008Q1

REPORT INFORMATION
  Report Type: 
  Country: None (occurrence: None)
  Receive Date: 20080102
  Receipt Date: 20071219
  Transmission Date: 20080703
  Serious: Yes (Death, Life-Threatening)
  Sender: FDA-Public Use
  Company Number: IT-BAYER-200715588GDS

PATIENT
  Age: 93 Year
  Sex: Female

DRUGS (8)
  1. AVELOX [Suspect]
     Indication: BRONCHOPNEUMONIA
     Dosage: TOTAL DAILY DOSE: 400 MG  UNIT DOSE: 400 MG
     Route: 048
     Dates: start: 20070827, end: 20070906
  2. TAVANIC [Suspect]
     Indication: BRONCHOPNEUMONIA
     Dosage: TOTAL DAILY DOSE: 500 MG  UNIT DOSE: 500 MG
     Route: 042
     Dates: start: 20070822, end: 20070827
  3. FIDATO [Suspect]
     Indication: BRONCHOPNEUMONIA
     Dosage: TOTAL DAILY DOSE: 2 G  UNIT DOSE: 2 G
     Route: 042
     Dates: start: 20070818, end: 20070907
  4. CLEXANE [Concomitant]
     Indication: DRUG USE FOR UNKNOWN INDICATION
     Dosage: TOTAL DAILY DOSE: 16000 U  UNIT DOSE: 4000 U
     Route: 058
     Dates: start: 20070818, end: 20070901
  5. LANOXIN [Concomitant]
     Indication: DRUG USE FOR UNKNOWN INDICATION
     Dosage: TOTAL DAILY DOSE: 0.25 MG  UNIT DOSE: 0.25 MG
     Route: 048
     Dates: start: 20070822, end: 20070826
  6. LANOXIN [Concomitant]
     Dosage: TOTAL DAILY DOSE: 0.125 MG  UNIT DOSE: 0.125 MG
     Route: 048
     Dates: start: 20070827, end: 20070901
  7. POTASSIUM CHLORIDE [Concomitant]
     Indication: DRUG USE FOR UNKNOWN INDICATION
     Route: 042
     Dates: start: 20070818
  8. ISOTONIC SOLUTIONS [Concomitant]
     Indication: DRUG USE FOR UNKNOWN INDICATION
     Route: 042
     Dates: start: 20070818

REACTIONS (18)
  - ABDOMINAL PAIN [None]
  - ASTHENIA [None]
  - CHOLESTASIS [None]
  - COMA [None]
  - CONJUNCTIVAL HYPERAEMIA [None]
  - CYTOLYTIC HEPATITIS [None]
  - DECREASED APPETITE [None]
  - DIARRHOEA [None]
  - EYE PAIN [None]
  - HEPATITIS ACUTE [None]
  - JAUNDICE [None]
  - LOSS OF CONSCIOUSNESS [None]
  - OEDEMA [None]
  - PRURITUS [None]
  - PYREXIA [None]
  - SOPOR [None]
  - VOMITING [None]
  - XEROPHTHALMIA [None]
